FAERS Safety Report 13847865 (Version 3)
Quarter: 2017Q4

REPORT INFORMATION
  Report Type: Spontaneous
  Country: US (occurrence: US)
  Receive Date: 20170809
  Receipt Date: 20171013
  Transmission Date: 20180320
  Serious: Yes (Other)
  Sender: FDA-Public Use
  Company Number: US-PURDUE-USA-2017-0139534

PATIENT
  Age: 57 Year
  Sex: Male
  Weight: 65.76 kg

DRUGS (3)
  1. VICODIN [Concomitant]
     Active Substance: ACETAMINOPHEN\HYDROCODONE BITARTRATE
     Indication: PAIN MANAGEMENT
     Dosage: 5/325 MG, UNK
     Route: 065
     Dates: start: 201303
  2. CLONAZEPAM. [Concomitant]
     Active Substance: CLONAZEPAM
     Indication: PRODUCT USED FOR UNKNOWN INDICATION
     Dosage: 1 MG, UNK
     Route: 065
     Dates: start: 201501
  3. BUPRENORPHINE TRANSDERMAL PATCH (SIMILAR TO NDA 21-306) [Suspect]
     Active Substance: BUPRENORPHINE
     Indication: PAIN MANAGEMENT
     Dosage: 5 MCG/HR, WEEKLY
     Route: 062
     Dates: start: 20170613, end: 20170616

REACTIONS (25)
  - Bedridden [Unknown]
  - Chills [Unknown]
  - Fatigue [Unknown]
  - Dyspnoea [Unknown]
  - Coordination abnormal [Unknown]
  - Muscle fatigue [Unknown]
  - Presyncope [Recovered/Resolved]
  - Disturbance in attention [Unknown]
  - Paraesthesia [Unknown]
  - Dysarthria [Recovered/Resolved]
  - Hyperhidrosis [Unknown]
  - Intentional product use issue [Unknown]
  - Impaired driving ability [Unknown]
  - Unevaluable event [Unknown]
  - Pallor [Unknown]
  - Lid sulcus deepened [Unknown]
  - Nausea [Unknown]
  - Dysuria [Unknown]
  - Headache [Unknown]
  - Pyrexia [Recovered/Resolved]
  - Wrong technique in product usage process [Unknown]
  - Product quality issue [Unknown]
  - Dizziness [Recovered/Resolved]
  - Abdominal pain upper [Unknown]
  - Malaise [Unknown]

NARRATIVE: CASE EVENT DATE: 20170615
